FAERS Safety Report 5136210-8 (Version None)
Quarter: 2006Q4

REPORT INFORMATION
  Report Type: 
  Country: None (occurrence: None)
  Receive Date: 20061027
  Receipt Date: 20061016
  Transmission Date: 20070319
  Serious: Yes (Other)
  Sender: FDA-Public Use
  Company Number: 2006AC01920

PATIENT
  Age: 22 Year
  Sex: Male

DRUGS (5)
  1. QUETIAPINE [Suspect]
     Indication: SCHIZOAFFECTIVE DISORDER
     Route: 048
  2. QUETIAPINE [Suspect]
     Dosage: INCREASED TO TARGET RESIDUAL DELUSIONS AND IRRITABILITY
     Route: 048
  3. QUETIAPINE [Suspect]
     Dosage: DECREASED DUE TO PHOTOPSIA
     Route: 048
  4. LITHIUM CARBONATE [Suspect]
     Indication: SCHIZOAFFECTIVE DISORDER
  5. CLONAZEPAM [Suspect]
     Indication: SCHIZOAFFECTIVE DISORDER
     Dosage: OVER 3 MONTH HOSPITALISATION PERIOD

REACTIONS (2)
  - OCULAR DISCOMFORT [None]
  - PHOTOPSIA [None]
